FAERS Safety Report 5761281-5 (Version None)
Quarter: 2008Q2

REPORT INFORMATION
  Report Type: 
  Country: None (occurrence: None)
  Receive Date: 20080606
  Receipt Date: 20080530
  Transmission Date: 20081010
  Serious: Yes (Other)
  Sender: FDA-Public Use
  Company Number: JP-ASTRAZENECA-2005SE04270

PATIENT
  Age: 11579 Day
  Sex: Female

DRUGS (10)
  1. BLOPRESS [Suspect]
     Indication: BLOOD PRESSURE INCREASED
     Route: 048
     Dates: start: 20041027
  2. BLOPRESS [Suspect]
     Route: 048
  3. BLOPRESS [Suspect]
     Route: 048
  4. FERROMIA [Concomitant]
     Route: 048
  5. MARZULENE S [Concomitant]
     Route: 048
  6. ALOSITOL [Concomitant]
     Route: 048
  7. ADALAT [Concomitant]
     Route: 048
  8. LASIX [Concomitant]
     Route: 042
  9. LASIX [Concomitant]
     Route: 048
  10. LASIX [Concomitant]
     Route: 048

REACTIONS (3)
  - DRUG EXPOSURE DURING PREGNANCY [None]
  - OLIGOHYDRAMNIOS [None]
  - PREMATURE BABY [None]
